FAERS Safety Report 23351982 (Version 1)
Quarter: 2023Q4

REPORT INFORMATION
  Report Type: Spontaneous
  Country: FR (occurrence: FR)
  Receive Date: 20231229
  Receipt Date: 20231229
  Transmission Date: 20240110
  Serious: Yes (Hospitalization, Other)
  Sender: FDA-Public Use
  Company Number: FR-SUN PHARMACEUTICAL INDUSTRIES LTD-2023R1-425749

PATIENT
  Age: 60 Year
  Sex: Male

DRUGS (8)
  1. LEVOFLOXACIN [Suspect]
     Active Substance: LEVOFLOXACIN
     Indication: Stenotrophomonas infection
     Dosage: 1 GRAM, QD
     Route: 042
     Dates: start: 20231126
  2. MEROPENEM [Suspect]
     Active Substance: MEROPENEM
     Indication: Infection
     Dosage: UNK
     Route: 042
     Dates: start: 20231114, end: 20231128
  3. PANTOPRAZOLE [Suspect]
     Active Substance: PANTOPRAZOLE
     Indication: Infection
     Dosage: 40 MILLIGRAM, DAILY
     Route: 042
     Dates: start: 20231112, end: 20231206
  4. BACTRIM [Suspect]
     Active Substance: SULFAMETHOXAZOLE\TRIMETHOPRIM
     Indication: Stenotrophomonas infection
     Dosage: 3 DOSAGE FORM, DAILY
     Route: 042
     Dates: start: 20231126, end: 20231127
  5. IOBITRIDOL [Suspect]
     Active Substance: IOBITRIDOL
     Indication: Computerised tomogram
     Dosage: UNK (90 ML ONCE)
     Route: 042
     Dates: start: 20231112, end: 20231112
  6. IOBITRIDOL [Suspect]
     Active Substance: IOBITRIDOL
     Dosage: UNK  (90 ML ONCE)
     Route: 042
     Dates: start: 20231116, end: 20231116
  7. IOBITRIDOL [Suspect]
     Active Substance: IOBITRIDOL
     Dosage: UNK  (90 ML ONCE)
     Route: 042
     Dates: start: 20231123, end: 20231123
  8. IOMERON [Suspect]
     Active Substance: IOMEPROL
     Indication: Urogram
     Dosage: UNK (1 ML ONCE)
     Route: 042
     Dates: start: 20231124

REACTIONS (1)
  - Toxic skin eruption [Recovered/Resolved]

NARRATIVE: CASE EVENT DATE: 20231127
